FAERS Safety Report 4763565-6 (Version None)
Quarter: 2005Q3

REPORT INFORMATION
  Report Type: 
  Country: None (occurrence: None)
  Receive Date: 20050908
  Receipt Date: 20050318
  Transmission Date: 20060218
  Serious: Yes (Hospitalization)
  Sender: FDA-Public Use
  Company Number: US-MERCK-0503USA03846

PATIENT
  Age: 72 Year
  Sex: Male
  Weight: 86 kg

DRUGS (8)
  1. VIOXX [Suspect]
     Indication: SPINAL COLUMN STENOSIS
     Route: 048
     Dates: start: 19991209, end: 20041004
  2. VIOXX [Suspect]
     Route: 048
  3. VIOXX [Suspect]
     Indication: OSTEOARTHRITIS
     Route: 048
     Dates: start: 19991209, end: 20041004
  4. VIOXX [Suspect]
     Route: 048
  5. LIPITOR [Concomitant]
     Route: 065
  6. VITAMINS (UNSPECIFIED) [Concomitant]
     Route: 065
  7. DETROL [Concomitant]
     Route: 065
  8. LASIX [Concomitant]
     Route: 065

REACTIONS (21)
  - ADVERSE EVENT [None]
  - AORTIC ANEURYSM [None]
  - ARTHROPATHY [None]
  - CARPAL TUNNEL SYNDROME [None]
  - CEREBROVASCULAR ACCIDENT [None]
  - CHEST PAIN [None]
  - CONSTIPATION [None]
  - DYSPEPSIA [None]
  - FALL [None]
  - HAEMORRHOIDS [None]
  - HEARING IMPAIRED [None]
  - HYPERTENSION [None]
  - IRRITABILITY [None]
  - OEDEMA PERIPHERAL [None]
  - PALPITATIONS [None]
  - RASH MACULO-PAPULAR [None]
  - RENAL FAILURE [None]
  - RETINOPATHY HYPERTENSIVE [None]
  - ROAD TRAFFIC ACCIDENT [None]
  - SPINAL LAMINECTOMY [None]
  - URINARY INCONTINENCE [None]
